FAERS Safety Report 8462540-8 (Version None)
Quarter: 2012Q2

REPORT INFORMATION
  Report Type: 
  Country: None (occurrence: None)
  Receive Date: 20120619
  Receipt Date: 20120619
  Transmission Date: 20120825
  Serious: No
  Sender: FDA-Public Use
  Company Number: None

PATIENT
  Age: 49 Year
  Sex: Male

DRUGS (1)
  1. BANANA BOAT AEROSOL SPRAY SUN SCREEN SPORT PERFORMANCE CLEAR MIST [Suspect]
     Dates: start: 20110705, end: 20110705

REACTIONS (3)
  - SKIN DISCOLOURATION [None]
  - SKIN ATROPHY [None]
  - HAIR COLOUR CHANGES [None]
